FAERS Safety Report 7596928-4 (Version None)
Quarter: 2011Q3

REPORT INFORMATION
  Report Type: 
  Country: None (occurrence: None)
  Receive Date: 20110708
  Receipt Date: 20110629
  Transmission Date: 20111222
  Serious: Yes (Hospitalization)
  Sender: FDA-Public Use
  Company Number: JP-AMGEN-JPNCT2011032993

PATIENT
  Age: 75 Year
  Sex: Male
  Weight: 58 kg

DRUGS (10)
  1. TSUMURA DAIKENTYUTO [Concomitant]
     Route: 048
     Dates: end: 20110616
  2. FLUOROURACIL [Concomitant]
     Indication: COLORECTAL CANCER
     Route: 040
     Dates: start: 20110531, end: 20110616
  3. FLUOROURACIL [Concomitant]
     Route: 041
     Dates: start: 20110531, end: 20110616
  4. HUMALOG [Concomitant]
     Route: 058
     Dates: end: 20110616
  5. METHYCOBAL [Concomitant]
     Route: 048
     Dates: end: 20110616
  6. OXALIPLATIN [Concomitant]
     Indication: COLORECTAL CANCER
     Dosage: UNK UNK, Q2WK
     Route: 041
     Dates: start: 20110531, end: 20110616
  7. MINOCYCLINE HCL [Concomitant]
     Route: 048
     Dates: start: 20110531, end: 20110616
  8. PANITUMUMAB [Suspect]
     Indication: COLORECTAL CANCER
     Dosage: 6 MG/KG, Q2WK
     Route: 041
     Dates: start: 20110531, end: 20110616
  9. LEUCOVORIN CALCIUM [Concomitant]
     Indication: COLORECTAL CANCER
     Route: 041
     Dates: start: 20110531, end: 20110616
  10. FAMOTIDINE [Concomitant]
     Route: 048
     Dates: end: 20110616

REACTIONS (3)
  - PYREXIA [None]
  - CEREBRAL INFARCTION [None]
  - WHITE BLOOD CELL COUNT DECREASED [None]
